FAERS Safety Report 5340642-2 (Version None)
Quarter: 2007Q2

REPORT INFORMATION
  Report Type: 
  Country: None (occurrence: None)
  Receive Date: 20070531
  Receipt Date: 20070523
  Transmission Date: 20071010
  Serious: Yes (Other)
  Sender: FDA-Public Use
  Company Number: US-PFIZER INC-2007042075

PATIENT
  Sex: Female

DRUGS (2)
  1. ZOLOFT [Suspect]
  2. LUNESTA [Concomitant]
     Indication: INSOMNIA
     Route: 048

REACTIONS (10)
  - ANXIETY [None]
  - DEPRESSION [None]
  - DRUG INEFFECTIVE [None]
  - FALL [None]
  - HIP ARTHROPLASTY [None]
  - HUMERUS FRACTURE [None]
  - MENTAL DISORDER [None]
  - PAIN [None]
  - PARKINSON'S DISEASE [None]
  - SLEEP DISORDER [None]
